FAERS Safety Report 7889692-2 (Version None)
Quarter: 2011Q4

REPORT INFORMATION
  Report Type: 
  Country: None (occurrence: None)
  Receive Date: 20111103
  Receipt Date: 20111028
  Transmission Date: 20120403
  Serious: Yes (Hospitalization)
  Sender: FDA-Public Use
  Company Number: US-ABBOTT-11P-163-0869704-00

PATIENT
  Sex: Male
  Weight: 80.812 kg

DRUGS (3)
  1. ANDROGEL [Suspect]
     Indication: BLOOD TESTOSTERONE DECREASED
     Route: 061
     Dates: start: 20000101, end: 20060101
  2. ANDROGEL [Suspect]
     Route: 061
     Dates: start: 20060101
  3. WARFARIN SODIUM [Concomitant]
     Indication: PRODUCT USED FOR UNKNOWN INDICATION
     Dates: start: 20100101

REACTIONS (8)
  - ACNE [None]
  - PULMONARY EMBOLISM [None]
  - BLOOD TRIGLYCERIDES INCREASED [None]
  - BRONCHIAL IRRITATION [None]
  - BLOOD CHOLESTEROL INCREASED [None]
  - HEART RATE INCREASED [None]
  - RASH [None]
  - THROMBOSIS [None]
